FAERS Safety Report 7955144-4 (Version None)
Quarter: 2011Q4

REPORT INFORMATION
  Report Type: 
  Country: None (occurrence: None)
  Receive Date: 20111202
  Receipt Date: 20111130
  Transmission Date: 20120403
  Serious: Yes (Death, Hospitalization, Other)
  Sender: FDA-Public Use
  Company Number: DE-ELI_LILLY_AND_COMPANY-DE201111005308

PATIENT
  Age: 86 Year
  Sex: Male

DRUGS (10)
  1. ACC                                /00082801/ [Concomitant]
  2. PANTOPRAZOLE SODIUM [Concomitant]
  3. DEXAMETHASONE SODIUM PHOSPHATE [Concomitant]
     Dosage: UNK
     Dates: start: 20111017
  4. FOLSAN [Concomitant]
     Dosage: UNK
     Dates: start: 20111017
  5. BISOPROLOL FUMARATE [Concomitant]
     Route: 048
  6. FORMOTEROL FUMARATE [Concomitant]
  7. ALIMTA [Suspect]
     Indication: LUNG ADENOCARCINOMA
     Dosage: 500 MG/M2, UNKNOWN
     Route: 042
     Dates: start: 20111017
  8. GLIMEPIRID [Concomitant]
     Route: 048
  9. VITAMIN B-12 [Concomitant]
     Dosage: UNK
     Dates: start: 20111017
  10. VINORELBINE [Concomitant]

REACTIONS (8)
  - HYPERKALAEMIA [None]
  - RESPIRATORY FAILURE [None]
  - GENERAL PHYSICAL HEALTH DETERIORATION [None]
  - CARDIAC FAILURE [None]
  - ACUTE HEPATIC FAILURE [None]
  - DYSPNOEA [None]
  - TACHYCARDIA [None]
  - HEPATIC CONGESTION [None]
